FAERS Safety Report 8764012 (Version 1)
Quarter: 2012Q4

REPORT INFORMATION
  Report Type: Report from Study
  Country: JP (occurrence: JP)
  Receive Date: 20120831
  Receipt Date: 20120831
  Transmission Date: 20130627
  Serious: Yes (Death, Hospitalization)
  Sender: FDA-Public Use
  Company Number: JP-EISAI INC-E7389-02915-CLI-JP

PATIENT
  Age: 60 Year
  Sex: Female
  Weight: 42 kg

DRUGS (13)
  1. HALAVEN [Suspect]
     Indication: BREAST CANCER RECURRENT
     Route: 041
     Dates: start: 20111012, end: 20111102
  2. HALAVEN [Suspect]
     Indication: METASTASES TO LYMPH NODES
  3. HALAVEN [Suspect]
     Indication: METASTASES TO BONE
  4. HALAVEN [Suspect]
     Indication: METASTASES TO SKIN
  5. HERCEPTIN [Concomitant]
     Indication: BREAST CANCER RECURRENT
     Dates: start: 20111101
  6. TOLEDOMIN [Concomitant]
     Route: 048
  7. PROTECADIN [Concomitant]
     Indication: PROPHYLAXIS
     Route: 048
  8. VOLTAREN SR [Concomitant]
     Route: 048
  9. LASIX [Concomitant]
     Route: 048
  10. AMLODIPINE [Concomitant]
     Route: 048
  11. OPSO [Concomitant]
     Route: 048
  12. DUROTEP [Concomitant]
     Route: 048
  13. MAGMITT [Concomitant]
     Route: 048

REACTIONS (7)
  - Lymphopenia [Not Recovered/Not Resolved]
  - Neutropenia [Not Recovered/Not Resolved]
  - Leukopenia [Not Recovered/Not Resolved]
  - Malignant neoplasm progression [Fatal]
  - Blood pressure decreased [None]
  - Loss of consciousness [None]
  - Stomatitis [None]
